FAERS Safety Report 10235579 (Version 1)
Quarter: 2014Q2

REPORT INFORMATION
  Report Type: Spontaneous
  Country: US (occurrence: US)
  Receive Date: 20140613
  Receipt Date: 20140613
  Transmission Date: 20141212
  Serious: No
  Sender: FDA-Public Use
  Company Number: US-BAYER-2014-087938

PATIENT
  Age: 58 Year
  Sex: Female

DRUGS (13)
  1. CIPRO [Suspect]
  2. IBRUTINIB [Suspect]
     Indication: CHRONIC LYMPHOCYTIC LEUKAEMIA
     Dosage: UNK
     Route: 048
     Dates: start: 20140217
  3. DIOVAN [Concomitant]
  4. DIGOXIN [Concomitant]
  5. CARVEDILOL [Concomitant]
  6. LASIX [Concomitant]
  7. POTASSIUM CHLORIDE [Concomitant]
  8. IMDUR [Concomitant]
  9. ACYCLOVIR [ACICLOVIR] [Concomitant]
  10. PENTAMIDINE [Concomitant]
  11. PRILOSEC [Concomitant]
  12. ASPIRIN [Concomitant]
  13. ALLOPURINOL [Concomitant]

REACTIONS (2)
  - Diarrhoea [None]
  - Muscle spasms [None]
